FAERS Safety Report 23149376 (Version 2)
Quarter: 2024Q1

REPORT INFORMATION
  Report Type: Spontaneous
  Country: JP (occurrence: JP)
  Receive Date: 20231106
  Receipt Date: 20240214
  Transmission Date: 20240410
  Serious: Yes (Hospitalization, Other)
  Sender: FDA-Public Use
  Company Number: JP-Eisai-202308941_LEN-RCC_P_1

PATIENT
  Age: 73 Year
  Sex: Male

DRUGS (3)
  1. LENVIMA [Suspect]
     Active Substance: LENVATINIB
     Indication: Clear cell renal cell carcinoma
     Route: 048
  2. LENVIMA [Suspect]
     Active Substance: LENVATINIB
     Route: 048
  3. KEYTRUDA [Concomitant]
     Active Substance: PEMBROLIZUMAB
     Indication: Clear cell renal cell carcinoma
     Dosage: DOSE AND FREQUENCY UNKNOWN
     Route: 041

REACTIONS (7)
  - Adrenocortical insufficiency acute [Unknown]
  - Decreased appetite [Unknown]
  - Malaise [Unknown]
  - Hypokinesia [Unknown]
  - Altered state of consciousness [Unknown]
  - Loss of personal independence in daily activities [Unknown]
  - Pleural effusion [Unknown]
